FAERS Safety Report 8821182 (Version 2)
Quarter: 2012Q4

REPORT INFORMATION
  Report Type: 
  Country: US (occurrence: US)
  Receive Date: 20121002
  Receipt Date: 20121022
  Transmission Date: 20130627
  Serious: No
  Sender: FDA-Public Use
  Company Number: US-009507513-1210USA000450

PATIENT

DRUGS (2)
  1. SAPHRIS [Suspect]
     Indication: INSOMNIA
     Dosage: 10 mg, bid
     Route: 060
  2. SAPHRIS [Suspect]
     Dosage: 10 mg, hs
     Route: 060

REACTIONS (3)
  - Sedation [Recovered/Resolved]
  - Inappropriate schedule of drug administration [Unknown]
  - Off label use [Unknown]
